FAERS Safety Report 10039663 (Version 4)
Quarter: 2014Q2

REPORT INFORMATION
  Report Type: Spontaneous
  Country: US (occurrence: US)
  Receive Date: 20140326
  Receipt Date: 20140506
  Transmission Date: 20141212
  Serious: Yes (Hospitalization)
  Sender: FDA-Public Use
  Company Number: US-JNJFOC-20140313728

PATIENT
  Age: 27 Year
  Sex: Male

DRUGS (3)
  1. SIMPONI [Suspect]
     Indication: COLITIS ULCERATIVE
     Route: 058
  2. ASA [Concomitant]
     Indication: COLITIS ULCERATIVE
     Route: 048
  3. IBUPROFEN [Concomitant]
     Indication: PAIN
     Route: 065

REACTIONS (2)
  - Pneumonia [Recovered/Resolved]
  - Anaemia [Unknown]
